FAERS Safety Report 4981618-4 (Version None)
Quarter: 2006Q2

REPORT INFORMATION
  Report Type: 
  Country: None (occurrence: None)
  Receive Date: 20060425
  Receipt Date: 20060413
  Transmission Date: 20061013
  Serious: Yes (Other)
  Sender: FDA-Public Use
  Company Number: PHBS2006SE05466

PATIENT
  Age: 66 Year
  Sex: Female

DRUGS (4)
  1. AREDIA [Suspect]
     Indication: MULTIPLE MYELOMA
     Route: 065
  2. ZOMETA [Suspect]
     Indication: MULTIPLE MYELOMA
     Dosage: 4 MG, UNK
     Route: 065
  3. PANKREON [Concomitant]
     Route: 065
  4. INTRON A [Concomitant]
     Route: 065

REACTIONS (5)
  - BONE DISORDER [None]
  - OSTEONECROSIS [None]
  - PAIN [None]
  - SURGERY [None]
  - TOOTH EXTRACTION [None]
